FAERS Safety Report 9845313 (Version 4)
Quarter: 2014Q2

REPORT INFORMATION
  Report Type: Report from Study
  Country: JP (occurrence: JP)
  Receive Date: 20140127
  Receipt Date: 20140418
  Transmission Date: 20141212
  Serious: Yes (Other)
  Sender: FDA-Public Use
  Company Number: JP-OTSUKA-JP-2014-10313

PATIENT
  Age: 61 Year
  Sex: Female
  Weight: 45.7 kg

DRUGS (48)
  1. SAMSCA [Suspect]
     Indication: OEDEMA DUE TO CARDIAC DISEASE
     Dosage: 7.5 MG MILLIGRAM(S), QAM
     Route: 048
     Dates: start: 20131211
  2. LASIX [Suspect]
     Indication: CARDIAC FAILURE
     Dosage: 20 MG MILLIGRAM(S), DAILY DOSE
     Route: 042
     Dates: start: 20131205, end: 20131205
  3. LASIX [Suspect]
     Dosage: 20 MG MILLIGRAM(S), DAILY DOSE
     Route: 042
     Dates: start: 20131214, end: 20131217
  4. LASIX [Suspect]
     Dosage: 40 MG MILLIGRAM(S), DAILY DOSE
     Route: 042
     Dates: start: 20131218, end: 20131219
  5. LASIX [Suspect]
     Dosage: 20 MG MILLIGRAM(S), DAILY DOSE
     Route: 042
     Dates: start: 20131220
  6. HANP [Suspect]
     Indication: CARDIAC FAILURE
     Dosage: 2000 MCG, DAILY DOSE
     Route: 042
     Dates: start: 20131220, end: 20131221
  7. LASIX [Concomitant]
     Indication: CARDIAC FAILURE
     Dosage: 30 MG MILLIGRAM(S), DAILY DOSE
     Route: 048
     Dates: end: 20131204
  8. LASIX [Concomitant]
     Dosage: 60 MG MILLIGRAM(S), DAILY DOSE
     Route: 048
     Dates: start: 20131205, end: 20131206
  9. LASIX [Concomitant]
     Dosage: 40 MG MILLIGRAM(S), DAILY DOSE
     Route: 048
     Dates: start: 20131207, end: 20131211
  10. LASIX [Concomitant]
     Dosage: 20 MG MILLIGRAM(S), DAILY DOSE
     Route: 048
     Dates: start: 20131212, end: 20131214
  11. DIGOSIN [Concomitant]
     Dosage: 0.25 MG MILLIGRAM(S), DAILY DOSE
     Route: 042
     Dates: start: 20131205, end: 20131205
  12. ADETPHOS-L [Concomitant]
     Dosage: 10 MG MILLIGRAM(S), DAILY DOSE
     Route: 042
     Dates: start: 20131205, end: 20131205
  13. ASPENON [Concomitant]
     Dosage: 40 MG MILLIGRAM(S), DAILY DOSE
     Route: 048
     Dates: start: 20131205, end: 20131211
  14. HALFDIGOXIN [Concomitant]
     Dosage: 0.125 MG MILLIGRAM(S), DAILY DOSE
     Route: 048
     Dates: start: 20131205, end: 20131207
  15. HALFDIGOXIN [Concomitant]
     Dosage: 0.062 MG MILLIGRAM(S), DAILY DOSE
     Route: 048
     Dates: start: 20131208, end: 20131211
  16. HALFDIGOXIN [Concomitant]
     Dosage: 0.25 MG MILLIGRAM(S), DAILY DOSE
     Route: 048
     Dates: start: 20131214, end: 20131215
  17. HALFDIGOXIN [Concomitant]
     Dosage: 0.062 MG MILLIGRAM(S), DAILY DOSE
     Route: 048
     Dates: start: 20131217
  18. ONOACT [Concomitant]
     Indication: CARDIAC FAILURE
     Dosage: 150 MG MILLIGRAM(S), DAILY DOSE
     Route: 042
     Dates: start: 20131211
  19. PREDONINE [Concomitant]
     Dosage: 14 MG MILLIGRAM(S), DAILY DOSE
     Route: 048
     Dates: end: 20131205
  20. PREDONINE [Concomitant]
     Dosage: 13 MG MILLIGRAM(S), DAILY DOSE
     Route: 048
     Dates: start: 20131206
  21. ADOAIR [Concomitant]
     Dosage: 500 MCG, DAILY DOSE
     Route: 055
  22. EDIROL [Concomitant]
     Dosage: 0.5 MCG, DAILY DOSE
     Route: 048
  23. LOXONIN [Concomitant]
     Indication: PAIN
     Dosage: 100 MG MILLIGRAM(S), PRN
     Route: 061
  24. AMLODIN [Concomitant]
     Dosage: 5 MG MILLIGRAM(S), DAILY DOSE
     Route: 048
  25. LAC-B [Concomitant]
     Indication: CONSTIPATION PROPHYLAXIS
     Dosage: 3 G GRAM(S), DAILY DOSE
     Route: 048
  26. NEXIUM [Concomitant]
     Indication: GASTRITIS PROPHYLAXIS
     Dosage: 20 MG MILLIGRAM(S), DAILY DOSE
     Route: 048
  27. LIVALO [Concomitant]
     Dosage: 4 MG MILLIGRAM(S), DAILY DOSE
     Route: 048
  28. COVERSYL [Concomitant]
     Dosage: 2 MG MILLIGRAM(S), DAILY DOSE
     Route: 048
  29. WARFARIN K [Concomitant]
     Indication: THROMBOSIS PROPHYLAXIS
     Dosage: 0.5 MG MILLIGRAM(S), DAILY DOSE
     Route: 048
     Dates: end: 20131216
  30. WARFARIN K [Concomitant]
     Dosage: 0.75 MG MILLIGRAM(S), DAILY DOSE
     Route: 048
     Dates: start: 20131217, end: 20131219
  31. WARFARIN K [Concomitant]
     Dosage: 0.5 MG MILLIGRAM(S), DAILY DOSE
     Route: 048
     Dates: start: 20131220, end: 20131221
  32. WARFARIN K [Concomitant]
     Dosage: 1 MG MILLIGRAM(S), DAILY DOSE
     Route: 048
     Dates: start: 20131223
  33. PARAMIDIN [Concomitant]
     Indication: THERAPEUTIC RESPONSE INCREASED
     Dosage: 300 MG MILLIGRAM(S), DAILY DOSE
     Route: 048
     Dates: end: 20131221
  34. PARAMIDIN [Concomitant]
     Dosage: 300 MG MILLIGRAM(S), DAILY DOSE
     Route: 048
     Dates: start: 20131223
  35. BAYASPIRIN [Concomitant]
     Indication: THROMBOSIS PROPHYLAXIS
     Dosage: 100 MG MILLIGRAM(S), DAILY DOSE
     Route: 048
  36. ALDACTONE A [Concomitant]
     Indication: CARDIAC FAILURE
     Dosage: 25 MG MILLIGRAM(S), DAILY DOSE
     Route: 048
  37. CELLCEPT [Concomitant]
     Dosage: 1000 MG MILLIGRAM(S), DAILY DOSE
     Route: 048
  38. LEVEMIR [Concomitant]
     Dosage: 16 IU, DAILY DOSE
     Route: 058
     Dates: end: 20131216
  39. LEVEMIR [Concomitant]
     Dosage: 12 IU, DAILY DOSE
     Route: 058
     Dates: start: 20131217, end: 20131218
  40. LEVEMIR [Concomitant]
     Dosage: 8 IU, DAILY DOSE
     Route: 058
     Dates: start: 20131219
  41. NOVORAPID [Concomitant]
     Dosage: 54 IU, DAILY DOSE
     Route: 058
     Dates: end: 20131216
  42. NOVORAPID [Concomitant]
     Dosage: 52 IU, DAILY DOSE
     Route: 058
     Dates: start: 20131218, end: 20131218
  43. NOVORAPID [Concomitant]
     Dosage: 40 IU, DAILY DOSE
     Route: 058
     Dates: start: 20131219
  44. LAXOBERON [Concomitant]
     Indication: CONSTIPATION PROPHYLAXIS
     Dosage: 15 GTT DROP(S), PRN
     Route: 048
     Dates: start: 20131214
  45. NEWTOLIDE [Concomitant]
     Indication: CARDIAC FAILURE
     Dosage: 6.25 MG MILLIGRAM(S), DAILY DOSE
     Route: 048
     Dates: start: 20131217
  46. KAYTWO N [Concomitant]
     Indication: PROTHROMBIN LEVEL ABNORMAL
     Dosage: 5 MG MILLIGRAM(S), DAILY DOSE
     Route: 042
     Dates: start: 20131222, end: 20131222
  47. ROHYPNOL [Concomitant]
     Indication: LABORATORY TEST
     Dosage: 2 MG MILLIGRAM(S), DAILY DOSE
     Route: 042
     Dates: start: 20131224, end: 20131224
  48. ANCARON [Concomitant]
     Dosage: 400 MG MILLIGRAM(S), DAILY DOSE
     Route: 048
     Dates: start: 20131224

REACTIONS (4)
  - Renal impairment [Recovering/Resolving]
  - Syncope [Recovered/Resolved]
  - Blood glucose decreased [Recovered/Resolved]
  - Blood uric acid increased [Recovered/Resolved]
